FAERS Safety Report 4358088-2 (Version None)
Quarter: 2004Q2

REPORT INFORMATION
  Report Type: 
  Country: None (occurrence: None)
  Receive Date: 20040514
  Receipt Date: 20040428
  Transmission Date: 20050107
  Serious: Yes (Death, Hospitalization, Other)
  Sender: FDA-Public Use
  Company Number: AU-BRISTOL-MYERS SQUIBB COMPANY-12572210

PATIENT
  Age: 24 Year
  Sex: Female

DRUGS (4)
  1. ABILIFY [Suspect]
  2. QUETIAPINE [Concomitant]
  3. LUVOX [Concomitant]
  4. TOPIRMATE [Concomitant]

REACTIONS (5)
  - AGITATION [None]
  - COMPLETED SUICIDE [None]
  - MANIA [None]
  - OBSESSIVE THOUGHTS [None]
  - SUICIDAL IDEATION [None]
